FAERS Safety Report 17408177 (Version 2)
Quarter: 2021Q1

REPORT INFORMATION
  Report Type: Report from Study
  Country: DE (occurrence: DE)
  Receive Date: 20200212
  Receipt Date: 20210206
  Transmission Date: 20210419
  Serious: Yes (Other)
  Sender: FDA-Public Use
  Company Number: DE-BRISTOL-MYERS SQUIBB COMPANY-BMS-2020-010369

PATIENT
  Age: 53 Year
  Sex: Male

DRUGS (1)
  1. ABATACEPT [Suspect]
     Active Substance: ABATACEPT
     Indication: RHEUMATOID ARTHRITIS
     Dosage: UNK
     Route: 065

REACTIONS (3)
  - Hypoacusis [Not Recovered/Not Resolved]
  - Myringitis [Recovering/Resolving]
  - Labyrinthitis [Not Recovered/Not Resolved]

NARRATIVE: CASE EVENT DATE: 20190616
